FAERS Safety Report 6599508-2 (Version None)
Quarter: 2010Q1

REPORT INFORMATION
  Report Type: 
  Country: None (occurrence: None)
  Receive Date: 20100216
  Receipt Date: 20100210
  Transmission Date: 20100710
  Serious: Yes (Hospitalization)
  Sender: FDA-Public Use
  Company Number: 2010SP008255

PATIENT
  Age: 65 Year
  Sex: Male

DRUGS (2)
  1. PEG-INTRON [Suspect]
     Indication: HEPATITIS C
     Dosage: QW;SC
     Route: 058
     Dates: start: 20091115, end: 20100120
  2. REBETOL [Suspect]
     Indication: HEPATITIS C
     Dosage: ;QD;PO
     Route: 048
     Dates: start: 20091115, end: 20100120

REACTIONS (2)
  - HAEMOTHORAX [None]
  - TUBERCULOSIS [None]
